FAERS Safety Report 16213125 (Version 1)
Quarter: 2019Q2

REPORT INFORMATION
  Report Type: Spontaneous
  Country: US (occurrence: US)
  Receive Date: 20190418
  Receipt Date: 20190418
  Transmission Date: 20190711
  Serious: Yes (Hospitalization)
  Sender: FDA-Public Use
  Company Number: US-TEVA-2019-US-1038539

PATIENT
  Age: 37 Year
  Sex: Female

DRUGS (3)
  1. LOPERAMID [Suspect]
     Active Substance: LOPERAMIDE
     Indication: SUICIDE ATTEMPT
     Dosage: FOUR DAYS
     Route: 048
  2. VENLAFAXINE [Suspect]
     Active Substance: VENLAFAXINE HYDROCHLORIDE
     Indication: DEPRESSION
     Route: 065
  3. LEVOTHYROXINE SODIUM. [Concomitant]
     Active Substance: LEVOTHYROXINE SODIUM
     Indication: HYPOTHYROIDISM
     Route: 065

REACTIONS (4)
  - Suicide attempt [Recovered/Resolved]
  - Cardiomyopathy [Recovered/Resolved]
  - Drug screen false positive [Unknown]
  - Intentional overdose [Recovered/Resolved]
